FAERS Safety Report 19142994 (Version 7)
Quarter: 2022Q3

REPORT INFORMATION
  Report Type: Report from Study
  Country: BR (occurrence: BR)
  Receive Date: 20210416
  Receipt Date: 20220713
  Transmission Date: 20221027
  Serious: No
  Sender: FDA-Public Use
  Company Number: BR-JNJFOC-20210412676

PATIENT
  Age: 6 Decade
  Sex: Female
  Weight: 112 kg

DRUGS (8)
  1. STELARA [Suspect]
     Active Substance: USTEKINUMAB
     Indication: Psoriasis
     Dosage: STRENGTH: 45.00 MG/ML
     Route: 058
     Dates: start: 20140514
  2. STELARA [Suspect]
     Active Substance: USTEKINUMAB
  3. STELARA [Suspect]
     Active Substance: USTEKINUMAB
  4. STELARA [Suspect]
     Active Substance: USTEKINUMAB
  5. STELARA [Suspect]
     Active Substance: USTEKINUMAB
     Indication: Psoriasis
     Dosage: STRENGTH: 45.00 MG/ML
     Route: 058
     Dates: start: 20140514
  6. STELARA [Suspect]
     Active Substance: USTEKINUMAB
  7. STELARA [Suspect]
     Active Substance: USTEKINUMAB
  8. STELARA [Suspect]
     Active Substance: USTEKINUMAB

REACTIONS (7)
  - Surgery [Unknown]
  - Psoriasis [Not Recovered/Not Resolved]
  - Product container seal issue [Unknown]
  - Onychoclasis [Not Recovered/Not Resolved]
  - Weight decreased [Not Recovered/Not Resolved]
  - Therapeutic response decreased [Unknown]
  - Inappropriate schedule of product administration [Unknown]
